FAERS Safety Report 9806110 (Version 2)
Quarter: 2014Q1

REPORT INFORMATION
  Report Type: Spontaneous
  Country: US (occurrence: US)
  Receive Date: 20140109
  Receipt Date: 20140109
  Transmission Date: 20141002
  Serious: Yes (Other)
  Sender: FDA-Public Use
  Company Number: US-TEVA-445025USA

PATIENT
  Sex: Female

DRUGS (4)
  1. MEGESTROL [Suspect]
     Dosage: 80 MILLIGRAM DAILY;
     Route: 048
     Dates: start: 201306
  2. THYROID [Interacting]
     Dosage: 90 MILLIGRAM DAILY;
  3. DOXORUBICIN HYDROCHLORIDE [Concomitant]
  4. BEVACIZUMAB [Concomitant]

REACTIONS (3)
  - Blood thyroid stimulating hormone increased [Recovered/Resolved]
  - Thyroid disorder [Unknown]
  - Drug interaction [Unknown]
